FAERS Safety Report 12056777 (Version 5)
Quarter: 2016Q2

REPORT INFORMATION
  Report Type: Spontaneous
  Country: US (occurrence: US)
  Receive Date: 20160209
  Receipt Date: 20160425
  Transmission Date: 20160815
  Serious: Yes (Other)
  Sender: FDA-Public Use
  Company Number: US-GLAXOSMITHKLINE-US2016018178

PATIENT
  Age: 73 Year
  Sex: Male

DRUGS (5)
  1. INCRUSE ELLIPTA [Suspect]
     Active Substance: UMECLIDINIUM BROMIDE
     Indication: CHRONIC OBSTRUCTIVE PULMONARY DISEASE
     Dosage: 62.5 MG
     Route: 055
     Dates: start: 20160115, end: 20160201
  2. LISINOPRIL HYDRATE [Concomitant]
     Active Substance: LISINOPRIL
  3. ASPIRIN. [Concomitant]
     Active Substance: ASPIRIN
  4. SYMBICORT [Concomitant]
     Active Substance: BUDESONIDE\FORMOTEROL FUMARATE DIHYDRATE
  5. PROAIR HFA [Concomitant]
     Active Substance: ALBUTEROL SULFATE

REACTIONS (8)
  - Urinary retention [Recovering/Resolving]
  - Haematuria [Recovering/Resolving]
  - Drug ineffective [Unknown]
  - Urine flow decreased [Unknown]
  - Haemorrhage urinary tract [Recovering/Resolving]
  - Dysuria [Recovering/Resolving]
  - Eye pain [Recovered/Resolved]
  - Pollakiuria [Recovering/Resolving]

NARRATIVE: CASE EVENT DATE: 2016
